FAERS Safety Report 21949810 (Version 1)
Quarter: 2023Q1

REPORT INFORMATION
  Report Type: Spontaneous
  Country: US (occurrence: None)
  Receive Date: 20230202
  Receipt Date: 20230202
  Transmission Date: 20230417
  Serious: Yes (Hospitalization, Other)
  Sender: FDA-Public Use
  Company Number: None

PATIENT
  Age: 46 Year
  Sex: Female
  Weight: 108 kg

DRUGS (5)
  1. CYMBALTA [Suspect]
     Active Substance: DULOXETINE HYDROCHLORIDE
     Indication: Fibromyalgia
     Route: 048
     Dates: start: 20220830, end: 20230105
  2. FLUOXETINE [Concomitant]
     Active Substance: FLUOXETINE HYDROCHLORIDE
  3. GABAPENTIN [Concomitant]
     Active Substance: GABAPENTIN
  4. PROPRANOLOL [Concomitant]
     Active Substance: PROPRANOLOL HYDROCHLORIDE
  5. RIZATRIPTAN [Concomitant]
     Active Substance: RIZATRIPTAN

REACTIONS (8)
  - Feeling abnormal [None]
  - Mania [None]
  - Self-injurious ideation [None]
  - Agitation [None]
  - Aggression [None]
  - Dissociation [None]
  - Withdrawal syndrome [None]
  - Impaired quality of life [None]

NARRATIVE: CASE EVENT DATE: 20230104
